FAERS Safety Report 8949616 (Version 1)
Quarter: 2012Q4

REPORT INFORMATION
  Report Type: Report from Study
  Country: US (occurrence: US)
  Receive Date: 20121206
  Receipt Date: 20121206
  Transmission Date: 20130627
  Serious: Yes (Hospitalization)
  Sender: FDA-Public Use
  Company Number: US-VERTEX PHARMACEUTICAL INC.-2012-024478

PATIENT
  Age: 58 Year
  Sex: Female
  Weight: 90 kg

DRUGS (12)
  1. VX-222 [Suspect]
     Indication: HEPATITIS C
     Dosage: UNK, qd
     Route: 048
     Dates: start: 20121102, end: 20121112
  2. VX-950 (TELAPREVIR) [Suspect]
     Indication: HEPATITIS C
     Dosage: UNK, qd
     Route: 048
     Dates: start: 20121102, end: 20121112
  3. Z-PEGYLATED INTERFERON-2A [Suspect]
     Indication: HEPATITIS C
     Dosage: 180 ?g, qw
     Route: 058
     Dates: start: 20121102, end: 20121109
  4. RIBAVIRIN [Suspect]
     Indication: HEPATITIS C
     Dosage: 1200 mg, qd
     Route: 048
     Dates: start: 20121102, end: 20121112
  5. OMEPRAZOLE [Concomitant]
  6. METFORMIN [Concomitant]
  7. ATENOLOL [Concomitant]
  8. SYNTHROID [Concomitant]
  9. LISINOPRIL AND HYDROCHLOROTHIAZIDE [Concomitant]
  10. SPIRONOLACTONE [Concomitant]
  11. MULTIVITAMIN [Concomitant]
  12. VITAMIN D [Concomitant]

REACTIONS (4)
  - Myositis [Recovered/Resolved]
  - Haematochezia [Recovered/Resolved]
  - Tendon disorder [Recovered/Resolved]
  - Pancytopenia [Recovered/Resolved]
